FAERS Safety Report 10085575 (Version 2)
Quarter: 2014Q2

REPORT INFORMATION
  Report Type: Spontaneous
  Country: FR (occurrence: FR)
  Receive Date: 20140418
  Receipt Date: 20140418
  Transmission Date: 20141212
  Serious: Yes (Hospitalization, Other)
  Sender: FDA-Public Use
  Company Number: FR-AMGEN INC.-FRASP2014008528

PATIENT
  Age: 34 Year
  Sex: Male
  Weight: 92 kg

DRUGS (2)
  1. ENBREL [Suspect]
     Indication: ANKYLOSING SPONDYLITIS
     Dosage: 50 MG, WEEKLY
     Route: 065
     Dates: start: 201303, end: 201310
  2. BI-PROFENID [Concomitant]
     Dosage: UNK
     Route: 048

REACTIONS (12)
  - General physical health deterioration [Recovering/Resolving]
  - Pyrexia [Recovering/Resolving]
  - Hyperhidrosis [Recovering/Resolving]
  - Weight decreased [Recovering/Resolving]
  - Inflammation [Not Recovered/Not Resolved]
  - Plantar fasciitis [Recovered/Resolved]
  - Pain in extremity [Recovered/Resolved]
  - Spinal pain [Not Recovered/Not Resolved]
  - Drug ineffective [Unknown]
  - Sarcoidosis [Recovering/Resolving]
  - Tuberculosis [Recovered/Resolved]
  - Chest pain [Recovered/Resolved]
